FAERS Safety Report 12665411 (Version 1)
Quarter: 2016Q3

REPORT INFORMATION
  Report Type: Report from Study
  Country: US (occurrence: US)
  Receive Date: 20160818
  Receipt Date: 20160818
  Transmission Date: 20161109
  Serious: Yes (Hospitalization)
  Sender: FDA-Public Use
  Company Number: US-ACTELION-A-US2016-140793

PATIENT
  Age: 68 Year
  Sex: Female

DRUGS (1)
  1. OPSUMIT [Suspect]
     Active Substance: MACITENTAN
     Indication: PULMONARY ARTERIAL HYPERTENSION
     Dosage: 10 MG, UNK
     Route: 048
     Dates: start: 20140103

REACTIONS (7)
  - Cardiac failure [Unknown]
  - Respiratory failure [Unknown]
  - Asthenia [Unknown]
  - Syncope [Unknown]
  - Weight decreased [Unknown]
  - Blood pressure increased [Unknown]
  - Diverticulitis [Unknown]
